FAERS Safety Report 20583447 (Version 1)
Quarter: 2022Q1

REPORT INFORMATION
  Report Type: Spontaneous
  Country: IT (occurrence: None)
  Receive Date: 20220311
  Receipt Date: 20220311
  Transmission Date: 20220423
  Serious: Yes (Life-Threatening, Hospitalization, Other)
  Sender: FDA-Public Use
  Company Number: IT-Hikma Pharmaceuticals USA Inc.-IT-H14001-22-00698

PATIENT
  Age: 53 Year
  Sex: Male

DRUGS (3)
  1. CYTARABINE [Suspect]
     Active Substance: CYTARABINE
     Indication: Acute myeloid leukaemia
     Route: 065
     Dates: start: 20211108, end: 20211113
  2. DAUNORUBICIN [Suspect]
     Active Substance: DAUNORUBICIN
     Indication: Acute myeloid leukaemia
     Route: 065
     Dates: start: 20211111, end: 20211113
  3. GEMTUZUMAB OZOGAMICIN [Suspect]
     Active Substance: GEMTUZUMAB OZOGAMICIN
     Indication: Acute myeloid leukaemia
     Route: 065
     Dates: start: 20211108, end: 20211108

REACTIONS (6)
  - COVID-19 pneumonia [Recovered/Resolved]
  - Pericardial effusion [Unknown]
  - Pneumonia [Unknown]
  - Respiratory gas exchange disorder [Unknown]
  - Condition aggravated [Unknown]
  - Atrial flutter [Unknown]

NARRATIVE: CASE EVENT DATE: 20220114
